FAERS Safety Report 14630203 (Version 3)
Quarter: 2018Q1

REPORT INFORMATION
  Report Type: Spontaneous
  Country: US (occurrence: US)
  Receive Date: 20180313
  Receipt Date: 20180330
  Transmission Date: 20180509
  Serious: No
  Sender: FDA-Public Use
  Company Number: US-PFIZER INC-2018100969

PATIENT
  Age: 61 Year
  Sex: Female

DRUGS (3)
  1. EUCRISA [Suspect]
     Active Substance: CRISABOROLE
     Indication: DERMATITIS ATOPIC
     Dosage: UNK, TWICE DAILY
     Route: 061
     Dates: start: 201802, end: 20180223
  2. SINGULAIR [Concomitant]
     Active Substance: MONTELUKAST SODIUM
     Indication: ASTHMA
     Dosage: UNK
  3. VENTOLIN [Concomitant]
     Active Substance: ALBUTEROL SULFATE
     Indication: ASTHMA
     Dosage: UNK

REACTIONS (8)
  - Condition aggravated [Unknown]
  - Blister [Unknown]
  - Rash papular [Unknown]
  - Pruritus [Recovering/Resolving]
  - Skin discolouration [Not Recovered/Not Resolved]
  - Dry skin [Unknown]
  - Lichenification [Unknown]
  - Skin hyperpigmentation [Unknown]
